FAERS Safety Report 20068017 (Version 1)
Quarter: 2021Q4

REPORT INFORMATION
  Report Type: Spontaneous
  Country: JP (occurrence: JP)
  Receive Date: 20211115
  Receipt Date: 20211115
  Transmission Date: 20220304
  Serious: Yes (Other)
  Sender: FDA-Public Use
  Company Number: JP-TAKEDA-2021TJP106986

PATIENT
  Age: 25 Year
  Sex: Female

DRUGS (1)
  1. VONVENDI [Suspect]
     Active Substance: VON WILLEBRAND FACTOR (RECOMBINANT)
     Indication: Von Willebrand^s disease
     Dosage: 2600 INTERNATIONAL UNIT
     Route: 042
     Dates: start: 20210701

REACTIONS (2)
  - Haemorrhage intracranial [Recovered/Resolved]
  - Accident [Recovered/Resolved]
